FAERS Safety Report 14008816 (Version 1)
Quarter: 2017Q3

REPORT INFORMATION
  Report Type: Spontaneous
  Country: JP (occurrence: JP)
  Receive Date: 20170925
  Receipt Date: 20170925
  Transmission Date: 20171128
  Serious: Yes (Hospitalization, Other)
  Sender: FDA-Public Use
  Company Number: JP-PFIZER INC-2017407935

PATIENT

DRUGS (1)
  1. GABAPEN [Suspect]
     Active Substance: GABAPENTIN
     Route: 048

REACTIONS (3)
  - Asthenia [Unknown]
  - Status epilepticus [Unknown]
  - Renal impairment [Unknown]
